FAERS Safety Report 14245332 (Version 1)
Quarter: 2017Q4

REPORT INFORMATION
  Report Type: Spontaneous
  Country: US (occurrence: US)
  Receive Date: 20171202
  Receipt Date: 20171202
  Transmission Date: 20180321
  Serious: No
  Sender: FDA-Public Use
  Company Number: US-ENDO PHARMACEUTICALS INC-2017-004706

PATIENT
  Sex: Male
  Weight: 103.4 kg

DRUGS (3)
  1. ATORVASTIN [Concomitant]
     Active Substance: ATORVASTATIN
     Indication: BLOOD CHOLESTEROL
  2. XIAFLEX [Suspect]
     Active Substance: COLLAGENASE CLOSTRIDIUM HISTOLYTICUM
     Indication: PENIS INJURY
     Dosage: UNK UNKNOWN, UNKNOWN (1ST INJECTION OF 1ST CYCLE)
     Route: 026
     Dates: start: 2016, end: 2016
  3. ESCITALOPRAM OXALATE. [Concomitant]
     Active Substance: ESCITALOPRAM OXALATE
     Indication: PRODUCT USED FOR UNKNOWN INDICATION

REACTIONS (5)
  - Dysuria [Recovered/Resolved]
  - Off label use [Recovered/Resolved]
  - Penile contusion [Recovered/Resolved]
  - Genital contusion [Recovered/Resolved]
  - Penile pain [Recovered/Resolved]

NARRATIVE: CASE EVENT DATE: 2016
